FAERS Safety Report 8672645 (Version 2)
Quarter: 2012Q4

REPORT INFORMATION
  Report Type: Report from Study
  Country: NL (occurrence: NL)
  Receive Date: 20120719
  Receipt Date: 20120910
  Transmission Date: 20130627
  Serious: Yes (Hospitalization)
  Sender: FDA-Public Use
  Company Number: NL-NAPPMUNDI-GBR-2012-0010993

PATIENT
  Age: 87 Year
  Sex: Female

DRUGS (3)
  1. UNSPECIFIED INGREDIENT [Suspect]
     Indication: CANCER PAIN
     Dosage: 5 mcg, q1h
     Route: 062
     Dates: start: 20120402
  2. PARACETAMOL [Concomitant]
     Dosage: 500 mg, UNK
     Route: 065
     Dates: start: 20111114
  3. VOLCOLON [Concomitant]

REACTIONS (1)
  - Epilepsy [Recovered/Resolved]
